FAERS Safety Report 7044800-0 (Version None)
Quarter: 2010Q4

REPORT INFORMATION
  Report Type: 
  Country: None (occurrence: None)
  Receive Date: 20101014
  Receipt Date: 20100930
  Transmission Date: 20110411
  Serious: Yes (Other)
  Sender: FDA-Public Use
  Company Number: PHEH2009US18965

PATIENT
  Sex: Male

DRUGS (3)
  1. AREDIA [Suspect]
     Dosage: 120 MG, UNK
     Dates: start: 19980506, end: 20001012
  2. AREDIA [Suspect]
     Dosage: 90 MG, UNK
     Dates: start: 20001115
  3. IRIDIUM IMPLANTATION [Concomitant]

REACTIONS (12)
  - ASTHENIA [None]
  - ATELECTASIS [None]
  - BLADDER OBSTRUCTION [None]
  - BLOOD CREATININE INCREASED [None]
  - BONE DENSITY DECREASED [None]
  - EXOSTOSIS [None]
  - FOOT FRACTURE [None]
  - HYPERHIDROSIS [None]
  - OSTEOPOROSIS [None]
  - PARAPROTEINAEMIA [None]
  - RENAL IMPAIRMENT [None]
  - VERTIGO POSITIONAL [None]
